FAERS Safety Report 8215107-0 (Version None)
Quarter: 2012Q1

REPORT INFORMATION
  Report Type: 
  Country: None (occurrence: None)
  Receive Date: 20120316
  Receipt Date: 20120314
  Transmission Date: 20120608
  Serious: No
  Sender: FDA-Public Use
  Company Number: US-BAYER-2012-025532

PATIENT
  Age: 80 Year
  Sex: Male

DRUGS (2)
  1. CIPROFLOXACIN HYDROCHLORIDE [Suspect]
     Indication: INFECTION PROPHYLAXIS
     Dosage: UNK
     Route: 048
     Dates: start: 20120313
  2. CHEMOTHERAPEUTICS NOS [Concomitant]
     Route: 048

REACTIONS (3)
  - FACIAL PAIN [None]
  - HEART RATE INCREASED [None]
  - OCULAR DISCOMFORT [None]
